FAERS Safety Report 10185630 (Version 1)
Quarter: 2014Q2

REPORT INFORMATION
  Report Type: Spontaneous
  Country: US (occurrence: None)
  Receive Date: 20140520
  Receipt Date: 20140520
  Transmission Date: 20141212
  Serious: Yes (Disabling, Other)
  Sender: FDA-Public Use
  Company Number: None

PATIENT
  Age: 57 Year
  Sex: Female
  Weight: 51.26 kg

DRUGS (8)
  1. CIPROFLOXACIN HCL [Suspect]
     Indication: URINARY TRACT INFECTION
     Dosage: 1 PILL BID ORAL
     Route: 048
     Dates: start: 20140318, end: 20140325
  2. CIPROFLOXACIN HCL [Suspect]
     Indication: PYELONEPHRITIS
     Dosage: 1 PILL BID ORAL
     Route: 048
     Dates: start: 20140318, end: 20140325
  3. MULTI VIT [Concomitant]
  4. VIT C [Concomitant]
  5. FISH OIL [Concomitant]
  6. VIT D [Concomitant]
  7. MAGNESIUM CITRATE [Concomitant]
  8. LYSINE [Concomitant]

REACTIONS (7)
  - Tendonitis [None]
  - Vision blurred [None]
  - Neuropathy peripheral [None]
  - Nightmare [None]
  - Tinnitus [None]
  - Tendon pain [None]
  - Tendon disorder [None]
